FAERS Safety Report 5324515-7 (Version None)
Quarter: 2007Q2

REPORT INFORMATION
  Report Type: 
  Country: None (occurrence: None)
  Receive Date: 20070508
  Receipt Date: 20070423
  Transmission Date: 20071010
  Serious: Yes (Death)
  Sender: FDA-Public Use
  Company Number: 2006JP005489

PATIENT
  Age: 49 Year
  Sex: Female
  Weight: 49.6 kg

DRUGS (24)
  1. FUNGUARD (MICAFUNGIN) INJECTION [Suspect]
     Indication: FUNGAL INFECTION
     Dosage: SEE IMAGE
     Route: 041
     Dates: start: 20060424, end: 20060427
  2. FUNGUARD (MICAFUNGIN) INJECTION [Suspect]
     Indication: FUNGAL INFECTION
     Dosage: SEE IMAGE
     Route: 041
     Dates: start: 20060428, end: 20060526
  3. PROGRAF [Concomitant]
  4. DIFLUCAN [Concomitant]
  5. MEROPEN (MEROPENEM) [Concomitant]
  6. VANCOMYCIN HYDROCHLORIDE [Concomitant]
  7. OMEGACIN (BIAPENEM) [Concomitant]
  8. HABEKACIN (ARBEKACIN) [Concomitant]
  9. TARGOCID [Concomitant]
  10. FINIBAX [Concomitant]
  11. ZYVOX [Concomitant]
  12. NEUPOGEN [Concomitant]
  13. FLUDARA [Concomitant]
  14. VEPESID [Concomitant]
  15. SANDIMMUNE [Concomitant]
  16. FLUCONAZOLE [Concomitant]
  17. ITRACONAZOLE [Concomitant]
  18. CYCLOSPORINE [Concomitant]
  19. METHOTREXATE [Concomitant]
  20. NEUPOGEN [Concomitant]
  21. MEROPENEM (MEROPENEM) [Concomitant]
  22. BIAPENEM (BIAPENEM) [Concomitant]
  23. ARBEKACIN (ARBEKACIN) [Concomitant]
  24. PREDNISONE TAB [Concomitant]

REACTIONS (15)
  - ANURIA [None]
  - ATRIAL FIBRILLATION [None]
  - BONE MARROW FAILURE [None]
  - ENCEPHALOPATHY [None]
  - GENERAL PHYSICAL HEALTH DETERIORATION [None]
  - HISTIOCYTOSIS HAEMATOPHAGIC [None]
  - INFECTION [None]
  - LEUKOPENIA [None]
  - PAIN IN EXTREMITY [None]
  - PNEUMONIA [None]
  - RENAL IMPAIRMENT [None]
  - SEPTIC SHOCK [None]
  - SERUM FERRITIN INCREASED [None]
  - TACHYCARDIA [None]
  - TRANSPLANT REJECTION [None]
